FAERS Safety Report 21349462 (Version 1)
Quarter: 2022Q3

REPORT INFORMATION
  Report Type: Report from Study
  Country: CN (occurrence: CN)
  Receive Date: 20220919
  Receipt Date: 20220919
  Transmission Date: 20221027
  Serious: Yes (Hospitalization)
  Sender: FDA-Public Use
  Company Number: CN-MYLANLABS-2022M1093810

PATIENT
  Age: 8 Year
  Sex: Female

DRUGS (11)
  1. METFORMIN [Suspect]
     Active Substance: METFORMIN HYDROCHLORIDE
     Indication: Monogenic diabetes
     Dosage: 850 MILLIGRAM, BID
     Route: 048
  2. METFORMIN [Suspect]
     Active Substance: METFORMIN HYDROCHLORIDE
     Indication: Monogenic diabetes
     Dosage: UNK, ENTERIC-COATED TABLETS
     Route: 065
  3. INSULIN NOS [Suspect]
     Active Substance: INSULIN NOS
     Indication: Monogenic diabetes
     Dosage: UNK, HIGH-DOSE
     Route: 065
  4. INSULIN GLULISINE [Suspect]
     Active Substance: INSULIN GLULISINE
     Indication: Monogenic diabetes
     Dosage: UNK, 20 UNITS THREE TIMES A DAY
     Route: 065
  5. INSULIN DEGLUDEC [Suspect]
     Active Substance: INSULIN DEGLUDEC
     Indication: Monogenic diabetes
     Dosage: UNK, QD, 30 UNITS/NIGHT
     Route: 065
  6. PIOGLITAZONE HYDROCHLORIDE AND METFORMIN HYDROCHLORIDE [Suspect]
     Active Substance: METFORMIN HYDROCHLORIDE\PIOGLITAZONE HYDROCHLORIDE
     Indication: Monogenic diabetes
     Dosage: 1 DOSAGE FORM, BID
     Route: 048
  7. INSULIN ASPART [Suspect]
     Active Substance: INSULIN ASPART
     Indication: Monogenic diabetes
     Dosage: UNK, 12 UNITS BEFORE MEALS
     Route: 058
  8. INSULIN ASPART [Suspect]
     Active Substance: INSULIN ASPART
     Dosage: UNK, 50 UNITS
     Route: 058
  9. INSULIN GLARGINE [Suspect]
     Active Substance: INSULIN GLARGINE
     Indication: Monogenic diabetes
     Dosage: UNK, 12 UNITS BEFORE 9PM
     Route: 058
  10. INSULIN GLARGINE [Suspect]
     Active Substance: INSULIN GLARGINE
     Dosage: UNK, 50 UNITS
     Route: 058
  11. ACARBOSE [Suspect]
     Active Substance: ACARBOSE
     Indication: Monogenic diabetes
     Dosage: UNK
     Route: 065

REACTIONS (2)
  - Drug ineffective [Unknown]
  - Off label use [Unknown]
